FAERS Safety Report 10133510 (Version 1)
Quarter: 2014Q2

REPORT INFORMATION
  Report Type: Spontaneous
  Country: US (occurrence: US)
  Receive Date: 20140428
  Receipt Date: 20140428
  Transmission Date: 20141212
  Serious: Yes (Other)
  Sender: FDA-Public Use
  Company Number: US-BRISTOL-MYERS SQUIBB COMPANY-20662524

PATIENT
  Age: 38 Year
  Sex: Female

DRUGS (6)
  1. ABILIFY TABS 10 MG [Suspect]
     Indication: ANXIETY
     Route: 048
     Dates: start: 20110505, end: 20140410
  2. ABILIFY TABS 10 MG [Suspect]
     Indication: DEPRESSION
     Route: 048
     Dates: start: 20110505, end: 20140410
  3. ABILIFY TABS 10 MG [Suspect]
     Indication: BIPOLAR DISORDER
     Route: 048
     Dates: start: 20110505, end: 20140410
  4. VISTARIL [Concomitant]
  5. WELLBUTRIN XL [Concomitant]
  6. TOPAMAX [Concomitant]

REACTIONS (1)
  - Vasculitis [Recovering/Resolving]
